FAERS Safety Report 23638905 (Version 4)
Quarter: 2025Q1

REPORT INFORMATION
  Report Type: Spontaneous
  Country: US (occurrence: US)
  Receive Date: 20240315
  Receipt Date: 20250310
  Transmission Date: 20250408
  Serious: Yes (Other)
  Sender: PFIZER
  Company Number: US-PFIZER INC-PV202300098145

PATIENT
  Age: 75 Year
  Sex: Female

DRUGS (5)
  1. IBRANCE [Suspect]
     Active Substance: PALBOCICLIB
     Indication: Breast cancer female
     Route: 048
  2. IBRANCE [Suspect]
     Active Substance: PALBOCICLIB
     Route: 048
  3. DILAUDID [Concomitant]
     Active Substance: HYDROMORPHONE HYDROCHLORIDE
     Dosage: 0.2 MG Q4HRS (EVERY 4 HOURS)
     Route: 042
  4. OXYCODONE [Concomitant]
     Active Substance: OXYCODONE
     Dosage: 5-10 MG Q4HRS (EVERY 4 HOURS)
  5. NEURONTIN [Concomitant]
     Active Substance: GABAPENTIN
     Dosage: 100 MG, 2X/DAY (EVERY 12 HOURS )
     Route: 048

REACTIONS (10)
  - Syncope [Unknown]
  - Bone disorder [Unknown]
  - Vertebral lesion [Unknown]
  - Cervical vertebral fracture [Unknown]
  - Periventricular leukomalacia [Unknown]
  - Cerebral atrophy [Unknown]
  - Neck pain [Unknown]
  - Brain fog [Unknown]
  - Product prescribing error [Unknown]
  - Product dose omission issue [Unknown]

NARRATIVE: CASE EVENT DATE: 20250101
